FAERS Safety Report 5042807-6 (Version None)
Quarter: 2006Q2

REPORT INFORMATION
  Report Type: 
  Country: None (occurrence: None)
  Receive Date: 20060614
  Receipt Date: 20060307
  Transmission Date: 20061013
  Serious: No
  Sender: FDA-Public Use
  Company Number: GAM-027-06-D

PATIENT
  Sex: Female
  Weight: 80 kg

DRUGS (2)
  1. OCTAGAM [Suspect]
     Indication: MULTIPLE SCLEROSIS
     Dosage: 30 GRAMS, IV
     Route: 042
     Dates: start: 20051101, end: 20060201
  2. DESOGESTREL TBL. [Concomitant]

REACTIONS (1)
  - TRANSAMINASES INCREASED [None]
